FAERS Safety Report 5289661-5 (Version None)
Quarter: 2007Q2

REPORT INFORMATION
  Report Type: 
  Country: None (occurrence: None)
  Receive Date: 20070406
  Receipt Date: 20070403
  Transmission Date: 20071010
  Serious: Yes (Hospitalization)
  Sender: FDA-Public Use
  Company Number: NL-MERCK-0704NLD00004

PATIENT
  Age: 49 Year
  Sex: Male

DRUGS (3)
  1. ZOCOR [Suspect]
     Indication: HYPERCHOLESTEROLAEMIA
     Route: 048
     Dates: start: 19880101, end: 19880101
  2. ZOCOR [Suspect]
     Route: 048
     Dates: start: 19980101
  3. OMEPRAZOLE [Concomitant]
     Route: 048
     Dates: start: 19890101

REACTIONS (2)
  - ARRHYTHMIA [None]
  - RETINAL DETACHMENT [None]
